FAERS Safety Report 11255439 (Version 1)
Quarter: 2015Q3

REPORT INFORMATION
  Report Type: Spontaneous
  Country: US (occurrence: US)
  Receive Date: 20150709
  Receipt Date: 20150709
  Transmission Date: 20151125
  Serious: No
  Sender: FDA-Public Use
  Company Number: US-SA-2015SA067229

PATIENT
  Age: 58 Year
  Sex: Female

DRUGS (1)
  1. AFREZZA [Suspect]
     Active Substance: INSULIN HUMAN
     Indication: TYPE 1 DIABETES MELLITUS
     Route: 065
     Dates: start: 201505

REACTIONS (3)
  - Blood glucose increased [Unknown]
  - Medication error [Unknown]
  - Cough [Unknown]

NARRATIVE: CASE EVENT DATE: 201505
